FAERS Safety Report 11212826 (Version 1)
Quarter: 2015Q2

REPORT INFORMATION
  Report Type: Spontaneous
  Country: US (occurrence: None)
  Receive Date: 20150622
  Receipt Date: 20150622
  Transmission Date: 20150821
  Serious: Yes (Other)
  Sender: FDA-Public Use
  Company Number: None

PATIENT
  Age: 74 Year
  Sex: Male
  Weight: 79.5 kg

DRUGS (2)
  1. EYLEA [Suspect]
     Active Substance: AFLIBERCEPT
     Indication: NEOVASCULAR AGE-RELATED MACULAR DEGENERATION
     Dosage: 2MG, Q6 WEEKS, INTRAVITREAL
     Dates: start: 20150327, end: 20150606
  2. TRAVATAN Z [Suspect]
     Active Substance: TRAVOPROST

REACTIONS (4)
  - Inflammation [None]
  - Vitreous floaters [None]
  - Anterior chamber cell [None]
  - Vitreous disorder [None]

NARRATIVE: CASE EVENT DATE: 20150610
